FAERS Safety Report 12540856 (Version 2)
Quarter: 2016Q3

REPORT INFORMATION
  Report Type: Spontaneous
  Country: US (occurrence: US)
  Receive Date: 20160708
  Receipt Date: 20160801
  Transmission Date: 20161109
  Serious: No
  Sender: FDA-Public Use
  Company Number: ALCN2016US004557

PATIENT
  Sex: Male

DRUGS (2)
  1. GENTEAL MILD [Suspect]
     Active Substance: HYPROMELLOSE 2910 (4000 MPA.S)
     Dosage: 3 GTT, PRN
     Route: 047
     Dates: end: 20160628
  2. GENTEAL MILD [Suspect]
     Active Substance: HYPROMELLOSE 2910 (4000 MPA.S)
     Indication: DRY EYE
     Dosage: 3 GTT, PRN
     Route: 047
     Dates: end: 20160628

REACTIONS (3)
  - Ocular discomfort [Recovering/Resolving]
  - Medication residue present [Recovering/Resolving]
  - Superficial injury of eye [Recovering/Resolving]
